FAERS Safety Report 9014964 (Version 1)
Quarter: 2013Q1

REPORT INFORMATION
  Report Type: Spontaneous
  Country: US (occurrence: None)
  Receive Date: 20130109
  Receipt Date: 20130109
  Transmission Date: 20140127
  Serious: Yes (Life-Threatening, Hospitalization)
  Sender: FDA-Public Use
  Company Number: None

PATIENT
  Age: 59 Year
  Sex: Female
  Weight: 61.24 kg

DRUGS (2)
  1. CEPHALEXIN [Suspect]
     Dates: start: 20121102
  2. NEOMYCIN [Suspect]
     Dates: start: 20121112

REACTIONS (2)
  - Pruritus [None]
  - Urticaria [None]
